FAERS Safety Report 25387056 (Version 1)
Quarter: 2025Q2

REPORT INFORMATION
  Report Type: Spontaneous
  Country: FR (occurrence: FR)
  Receive Date: 20250602
  Receipt Date: 20250602
  Transmission Date: 20250716
  Serious: Yes (Death)
  Sender: PFIZER
  Company Number: None

PATIENT
  Age: 88 Year
  Sex: Male
  Weight: 71 kg

DRUGS (2)
  1. LINEZOLID [Suspect]
     Active Substance: LINEZOLID
     Indication: Osteitis
     Dosage: 600 MG, 1X/DAY
     Route: 048
     Dates: start: 20250131, end: 20250219
  2. LEVOFLOXACIN [Suspect]
     Active Substance: LEVOFLOXACIN
     Indication: Osteitis
     Route: 048
     Dates: start: 20250131

REACTIONS (3)
  - Thrombocytopenia [Fatal]
  - Anaemia [Fatal]
  - Off label use [Unknown]

NARRATIVE: CASE EVENT DATE: 20250219
